FAERS Safety Report 5281144-1 (Version None)
Quarter: 2007Q1

REPORT INFORMATION
  Report Type: 
  Country: None (occurrence: None)
  Receive Date: 20070323
  Receipt Date: 20070309
  Transmission Date: 20070707
  Serious: Yes (Hospitalization)
  Sender: FDA-Public Use
  Company Number: IND-AE-07-SAN-009

PATIENT
  Age: 65 Year
  Sex: Female

DRUGS (6)
  1. CERIS (TROSPIUM CHLORIDE) MADAUS [Suspect]
     Dosage: 20 MG 2X/DAY - ORAL
     Route: 048
     Dates: start: 20061108, end: 20061212
  2. VIRLIX (CETIRIZINE 1CP/DAY) [Concomitant]
  3. DAFLON (DIOSMINE + HESPERIDINE) [Concomitant]
  4. NORDAZ 7.5MG (NORDAZEPAM 1CP/DAY) [Concomitant]
  5. ABUFENE (BETA-ALANINE 2CP/DAY 8 DAYS/MONTH) [Concomitant]
  6. SYMPAVAGOL (PASSIFLORA + AUBEPINE) [Concomitant]

REACTIONS (3)
  - BLOOD GLUCOSE INCREASED [None]
  - DYSPNOEA [None]
  - TACHYCARDIA [None]
